FAERS Safety Report 4620929-9 (Version None)
Quarter: 2005Q1

REPORT INFORMATION
  Report Type: 
  Country: None (occurrence: None)
  Receive Date: 20050325
  Receipt Date: 20050309
  Transmission Date: 20050727
  Serious: Yes (Life-Threatening)
  Sender: FDA-Public Use
  Company Number: A04200500249

PATIENT
  Age: 55 Year
  Sex: Male

DRUGS (6)
  1. STILNOX - (ZOLPIDEM) - TABLET - 10 MG [Suspect]
     Dosage: 10 MG
     Route: 048
     Dates: start: 20010102, end: 20010209
  2. SEROQUEL [Suspect]
     Dosage: 200 MG
     Route: 048
     Dates: start: 20010206, end: 20010209
  3. OMEPRAZOLE [Suspect]
     Dosage: 20 MG
     Route: 048
     Dates: start: 20010102, end: 20010209
  4. AMITRIPTYLINE HYDROCHLORIDE [Suspect]
     Indication: DEPRESSION
     Dosage: 150 MG
     Route: 048
     Dates: start: 20010129, end: 20010209
  5. LORAZEPAM [Suspect]
     Dosage: 3 MG
     Route: 048
     Dates: start: 20010102, end: 20010209
  6. PLANTOCUR (PLANTAGO OVATA HUSK) [Concomitant]

REACTIONS (9)
  - ANGINA PECTORIS [None]
  - ARTERIOSPASM CORONARY [None]
  - CARDIAC ARREST [None]
  - CIRCULATORY COLLAPSE [None]
  - DRUG INTERACTION [None]
  - RESPIRATORY ARREST [None]
  - TACHYCARDIA [None]
  - VENTRICULAR FIBRILLATION [None]
  - VENTRICULAR FLUTTER [None]
